FAERS Safety Report 9386059 (Version 2)
Quarter: 2013Q3

REPORT INFORMATION
  Report Type: Spontaneous
  Country: AU (occurrence: US)
  Receive Date: 20130706
  Receipt Date: 20130717
  Transmission Date: 20140515
  Serious: No
  Sender: FDA-Public Use
  Company Number: AU-009507513-1307USA002972

PATIENT
  Sex: Male

DRUGS (2)
  1. PROPECIA [Suspect]
     Indication: ANDROGENETIC ALOPECIA
     Route: 048
  2. PROPECIA [Suspect]
     Indication: PROPHYLAXIS

REACTIONS (1)
  - Alcohol use [Unknown]
